FAERS Safety Report 5202480-0 (Version None)
Quarter: 2006Q4

REPORT INFORMATION
  Report Type: 
  Country: None (occurrence: None)
  Receive Date: 20061010
  Receipt Date: 20051219
  Transmission Date: 20070319
  Serious: Yes (Life-Threatening)
  Sender: FDA-Public Use
  Company Number: 2005P1000631

PATIENT
  Age: 65 Year
  Sex: Female
  Weight: 86 kg

DRUGS (9)
  1. RETEVASE [Suspect]
     Indication: ACUTE MYOCARDIAL INFARCTION
     Dosage: IV
     Route: 042
     Dates: start: 20040130
  2. REOPRO [Suspect]
     Indication: ACUTE MYOCARDIAL INFARCTION
     Dosage: IV
     Route: 042
     Dates: start: 20040130, end: 20040130
  3. ATROPINE [Concomitant]
  4. DOPAMINE HCL [Concomitant]
  5. ROFECOXIB [Concomitant]
  6. TRAMADOL HCL [Concomitant]
  7. LISINOPRIL [Concomitant]
  8. RANITIDINE [Concomitant]
  9. MORPHINE [Concomitant]

REACTIONS (1)
  - HYPOTENSION [None]
